FAERS Safety Report 5165685-3 (Version None)
Quarter: 2006Q4

REPORT INFORMATION
  Report Type: 
  Country: None (occurrence: None)
  Receive Date: 20061206
  Receipt Date: 20061128
  Transmission Date: 20070319
  Serious: Yes (Hospitalization)
  Sender: FDA-Public Use
  Company Number: IL-JNJFOC-20061106394

PATIENT
  Age: 91 Year

DRUGS (9)
  1. ACETAMINOPHEN [Suspect]
  2. ACETAMINOPHEN [Suspect]
     Indication: DRUG USE FOR UNKNOWN INDICATION
     Dosage: 500-1000MG DAILY
  3. CEFUROXIME [Suspect]
     Indication: INFECTION
  4. CEFUROXIME [Suspect]
     Indication: STASIS DERMATITIS
  5. INDOMETHACIN [Concomitant]
  6. CAPTOPRIL [Concomitant]
  7. HYDROCHLOROTHIAZIDE [Concomitant]
  8. ISOSORBIDE MONONITRATE [Concomitant]
  9. LAXATIVE [Concomitant]

REACTIONS (1)
  - ACUTE GENERALISED EXANTHEMATOUS PUSTULOSIS [None]
